FAERS Safety Report 4655942-9 (Version None)
Quarter: 2005Q2

REPORT INFORMATION
  Report Type: 
  Country: None (occurrence: None)
  Receive Date: 20050506
  Receipt Date: 20050506
  Transmission Date: 20051028
  Serious: Yes (Hospitalization)
  Sender: FDA-Public Use
  Company Number: None

PATIENT
  Age: 72 Year
  Sex: Female
  Weight: 66 kg

DRUGS (4)
  1. VYTORIN [Suspect]
     Indication: HYPERLIPIDAEMIA
     Dosage: 1 TAB  QHS  ORAL
     Route: 048
     Dates: start: 20050101, end: 20050411
  2. HYDROCHLOROTHIAZIDE [Concomitant]
  3. VASOTEC [Concomitant]
  4. ALEVE [Concomitant]

REACTIONS (2)
  - CHOLELITHIASIS [None]
  - PANCREATITIS ACUTE [None]
